FAERS Safety Report 9359589 (Version 1)
Quarter: 2013Q2

REPORT INFORMATION
  Report Type: Spontaneous
  Country: US (occurrence: US)
  Receive Date: 20130620
  Receipt Date: 20130620
  Transmission Date: 20140414
  Serious: No
  Sender: FDA-Public Use
  Company Number: US-US-EMD SERONO, INC.-7014491

PATIENT
  Sex: Female

DRUGS (3)
  1. REBIF [Suspect]
     Indication: MULTIPLE SCLEROSIS
     Route: 058
     Dates: start: 20100809
  2. REBIF [Suspect]
     Route: 058
     Dates: start: 2010, end: 2010
  3. REBIF [Suspect]
     Route: 058
     Dates: start: 2010

REACTIONS (9)
  - Dizziness [Unknown]
  - Eye irritation [Recovering/Resolving]
  - Insomnia [Unknown]
  - Stress [Unknown]
  - Hypoaesthesia [Unknown]
  - Tremor [Unknown]
  - Fatigue [Unknown]
  - Chills [Unknown]
  - Headache [Unknown]
